FAERS Safety Report 20552679 (Version 1)
Quarter: 2022Q1

REPORT INFORMATION
  Report Type: Spontaneous
  Country: US (occurrence: None)
  Receive Date: 20220303
  Receipt Date: 20220303
  Transmission Date: 20220423
  Serious: Yes (Hospitalization)
  Sender: FDA-Public Use
  Company Number: None

PATIENT
  Age: 53 Year
  Sex: Female

DRUGS (25)
  1. OPSUMIT [Suspect]
     Active Substance: MACITENTAN
     Indication: Pulmonary arterial hypertension
     Dosage: FREQUENCY : DAILY;?
     Route: 048
     Dates: start: 20170113
  2. LORAZEPAM [Concomitant]
     Active Substance: LORAZEPAM
  3. GABAPENTIN [Concomitant]
     Active Substance: GABAPENTIN
  4. AMITRIPTYLINE [Concomitant]
  5. MONTELUKAST [Concomitant]
  6. ALBUTEROL NEB SOLN [Concomitant]
  7. RENVELA [Concomitant]
  8. OMEPRAZOLE [Concomitant]
  9. ATENOLOL [Concomitant]
  10. NARCAN [Concomitant]
     Active Substance: NALOXONE HYDROCHLORIDE
  11. TRAMADOL [Concomitant]
     Active Substance: TRAMADOL
  12. VELPHORO [Concomitant]
     Active Substance: SUCROFERRIC OXYHYDROXIDE
  13. VELPHORO [Concomitant]
     Active Substance: SUCROFERRIC OXYHYDROXIDE
  14. PREDNISONE [Concomitant]
     Active Substance: PREDNISONE
  15. EMLA [Concomitant]
  16. PANTOPRAZOLE [Concomitant]
  17. ASPIRIN [Concomitant]
     Active Substance: ASPIRIN
  18. CLOBETASOL TOP CREAM [Concomitant]
  19. CINACALCET [Concomitant]
  20. ASTELIN [Concomitant]
     Active Substance: AZELASTINE HYDROCHLORIDE
  21. ALBUTEROL HFA [Concomitant]
  22. MIDODRINE [Concomitant]
  23. LEVOTHYROXINE [Concomitant]
  24. KETOTIFEN OPHT DROP [Concomitant]
  25. NEPHRO-VITE [Concomitant]

REACTIONS (4)
  - Hypotension [None]
  - Acute respiratory failure [None]
  - Dialysis [None]
  - Respiratory failure [None]

NARRATIVE: CASE EVENT DATE: 20220131
